FAERS Safety Report 11149951 (Version 3)
Quarter: 2015Q3

REPORT INFORMATION
  Report Type: Spontaneous
  Country: US (occurrence: US)
  Receive Date: 20150529
  Receipt Date: 20150807
  Transmission Date: 20151125
  Serious: No
  Sender: FDA-Public Use
  Company Number: US-GLAXOSMITHKLINE-US2015GSK073055

PATIENT
  Sex: Male

DRUGS (3)
  1. VOTRIENT [Suspect]
     Active Substance: PAZOPANIB HYDROCHLORIDE
     Dosage: 200 UNK, UNK
  2. VOTRIENT [Suspect]
     Active Substance: PAZOPANIB HYDROCHLORIDE
     Indication: PRODUCT USED FOR UNKNOWN INDICATION
     Dosage: 200 MG, UNK
  3. VOTRIENT [Suspect]
     Active Substance: PAZOPANIB HYDROCHLORIDE
     Dosage: 200 MG, U
     Route: 048

REACTIONS (8)
  - Compression fracture [Unknown]
  - Chest pain [Unknown]
  - Dysgeusia [Unknown]
  - Hepatotoxicity [Unknown]
  - Spinal pain [Unknown]
  - Decreased appetite [Unknown]
  - Hypertension [Unknown]
  - Musculoskeletal chest pain [Unknown]
